FAERS Safety Report 9422981 (Version 2)
Quarter: 2013Q3

REPORT INFORMATION
  Report Type: Spontaneous
  Country: ES (occurrence: None)
  Receive Date: 20130711
  Receipt Date: 20130807
  Transmission Date: 20140515
  Serious: Yes (Other)
  Sender: FDA-Public Use
  Company Number: 2013036804

PATIENT
  Age: 28 Year
  Sex: Male

DRUGS (1)
  1. HIZENTRA (IMMUNOGLOBULIN HUMAN NORMAL) [Suspect]
     Indication: IMMUNODEFICIENCY COMMON VARIABLE
     Dosage: 60 G 1X/5 WEEKS, 200 MG/ML, 1 VIAL OF 5 ML
     Route: 058
     Dates: start: 20130315, end: 20130531

REACTIONS (5)
  - Rash generalised [None]
  - Dermatitis bullous [None]
  - Rash maculo-papular [None]
  - Injection site rash [None]
  - Rash [None]
